FAERS Safety Report 15778613 (Version 2)
Quarter: 2019Q1

REPORT INFORMATION
  Report Type: Spontaneous
  Country: US (occurrence: US)
  Receive Date: 20181231
  Receipt Date: 20190321
  Transmission Date: 20190417
  Serious: No
  Sender: FDA-Public Use
  Company Number: US-ASTRAZENECA-2018SF70947

PATIENT
  Sex: Female
  Weight: 59.9 kg

DRUGS (2)
  1. BEVESPI AEROSPHERE [Suspect]
     Active Substance: FORMOTEROL FUMARATE\GLYCOPYRROLATE
     Indication: CHRONIC OBSTRUCTIVE PULMONARY DISEASE
     Dosage: BEVESPI 9MCG/4.8MCG 2 PUFFS TWICE A DAY
     Route: 055
     Dates: start: 201801
  2. BEVESPI AEROSPHERE [Suspect]
     Active Substance: FORMOTEROL FUMARATE\GLYCOPYRROLATE
     Indication: EMPHYSEMA
     Dosage: BEVESPI 9MCG/4.8MCG 2 PUFFS TWICE A DAY
     Route: 055
     Dates: start: 201801

REACTIONS (7)
  - Intentional device misuse [Unknown]
  - Wrong technique in product usage process [Unknown]
  - Anxiety [Unknown]
  - Device malfunction [Unknown]
  - Dyspnoea [Unknown]
  - Panic attack [Unknown]
  - Device failure [Unknown]
